FAERS Safety Report 13838482 (Version 1)
Quarter: 2017Q3

REPORT INFORMATION
  Report Type: Spontaneous
  Country: US (occurrence: US)
  Receive Date: 20170804
  Receipt Date: 20170804
  Transmission Date: 20171127
  Serious: Yes (Life-Threatening, Hospitalization, Disabling, Other)
  Sender: FDA-Public Use
  Company Number: None

PATIENT
  Age: 83 Year
  Sex: Female
  Weight: 49.5 kg

DRUGS (13)
  1. VIMPAT [Suspect]
     Active Substance: LACOSAMIDE
     Indication: SEIZURE
     Dosage: ?          QUANTITY:1 TABLET(S);?
     Route: 048
  2. KEPPRA [Suspect]
     Active Substance: LEVETIRACETAM
     Indication: STARING
     Dosage: ?          QUANTITY:1 TABLET(S);?
     Route: 048
  3. LEMON BALM [Concomitant]
  4. DECATRON [Concomitant]
  5. ACTIVAN [Concomitant]
  6. OMEGA 3 [Concomitant]
     Active Substance: OMEGA-3 FATTY ACIDS
  7. HYDROCHORIDE [Concomitant]
  8. CALCIUM [Concomitant]
     Active Substance: CALCIUM
  9. MAGNESIUM [Concomitant]
     Active Substance: MAGNESIUM
  10. VALERIAN TEAS [Concomitant]
  11. MORPHINE [Concomitant]
     Active Substance: MORPHINE
  12. VITAMIN C [Concomitant]
     Active Substance: ASCORBIC ACID
  13. VITAMIN D [Concomitant]
     Active Substance: CHOLECALCIFEROL

REACTIONS (20)
  - Drug effect increased [None]
  - Hip surgery [None]
  - Product advertising issue [None]
  - Neoplasm malignant [None]
  - Swelling face [None]
  - Blepharospasm [None]
  - Balance disorder [None]
  - Drug administration error [None]
  - Drug dose omission [None]
  - Arthropathy [None]
  - Status epilepticus [None]
  - Asthenia [None]
  - Treatment failure [None]
  - Intentional product use issue [None]
  - Noninfective encephalitis [None]
  - Fall [None]
  - Seizure [None]
  - Unevaluable event [None]
  - Sleep disorder [None]
  - Gait disturbance [None]

NARRATIVE: CASE EVENT DATE: 20170131
